FAERS Safety Report 11616891 (Version 1)
Quarter: 2015Q4

REPORT INFORMATION
  Report Type: Spontaneous
  Country: US (occurrence: US)
  Receive Date: 20151009
  Receipt Date: 20151009
  Transmission Date: 20160304
  Serious: No
  Sender: FDA-Public Use
  Company Number: US-TEVA-599882USA

PATIENT
  Age: 44 Year
  Sex: Female

DRUGS (5)
  1. AMPYRA [Suspect]
     Active Substance: DALFAMPRIDINE
     Indication: MULTIPLE SCLEROSIS
     Dates: start: 2012
  2. OXYBUTYNIN [Concomitant]
     Active Substance: OXYBUTYNIN
     Dosage: UNKNOWN DOSE STRENGTH
  3. COPAXONE [Suspect]
     Active Substance: GLATIRAMER ACETATE
     Indication: MULTIPLE SCLEROSIS
     Dosage: UNKNOWN DOSE STRENGTH
  4. CITALOPRAM [Concomitant]
     Active Substance: CITALOPRAM HYDROBROMIDE
     Dosage: UNKNOWN DOSE STRENGTH
  5. VITAMINS [Concomitant]
     Active Substance: VITAMINS
     Dosage: UNKNOWN DOSE STRENGTH

REACTIONS (6)
  - Gait disturbance [Recovered/Resolved]
  - Drug dose omission [Recovered/Resolved]
  - Dyspepsia [Not Recovered/Not Resolved]
  - Injection site discharge [Recovered/Resolved]
  - Chest pain [Recovered/Resolved]
  - Memory impairment [Recovered/Resolved]

NARRATIVE: CASE EVENT DATE: 20120622
